FAERS Safety Report 5106921-9 (Version None)
Quarter: 2006Q3

REPORT INFORMATION
  Report Type: 
  Country: None (occurrence: None)
  Receive Date: 20060913
  Receipt Date: 20060829
  Transmission Date: 20061208
  Serious: Yes (Hospitalization, Other)
  Sender: FDA-Public Use
  Company Number: US-LLY-US_0411107731

PATIENT
  Age: 42 Year
  Sex: Female
  Weight: 107.94 kg

DRUGS (15)
  1. PERMAX [Suspect]
     Indication: MUSCLE TWITCHING
     Dosage: 0.05 MG; SEE IMAGE
     Dates: end: 20060501
  2. PERMAX [Suspect]
     Indication: MUSCLE TWITCHING
     Dosage: 0.05 MG; SEE IMAGE
     Dates: start: 19960820
  3. PERMAX [Suspect]
     Indication: MUSCLE TWITCHING
     Dosage: 0.05 MG; SEE IMAGE
     Dates: start: 20010101
  4. WELLBUTRIN [Concomitant]
  5. LORAZEPAM [Concomitant]
  6. CLONAZEPAM [Concomitant]
  7. GABAPENTIN [Concomitant]
  8. TRAMADOL HCL [Concomitant]
  9. TEMAZEPAM [Concomitant]
  10. TRAZODONE HCL [Concomitant]
  11. VIOXX [Concomitant]
  12. ESTRADIOL INJ [Concomitant]
  13. PARACETAMOL [Concomitant]
  14. HYDROCODONE BITARTRATE [Concomitant]
  15. METHYLENEDIOXYAMPHETAMINE [Concomitant]

REACTIONS (11)
  - ABNORMAL BEHAVIOUR [None]
  - ANAEMIA [None]
  - BREAST CYST [None]
  - DRUG EFFECT DECREASED [None]
  - ENDOCARDITIS [None]
  - FOOT FRACTURE [None]
  - GAMBLING [None]
  - HAND FRACTURE [None]
  - MARITAL PROBLEM [None]
  - SUICIDAL IDEATION [None]
  - THERAPY REGIMEN CHANGED [None]
